FAERS Safety Report 5974986-8 (Version None)
Quarter: 2008Q4

REPORT INFORMATION
  Report Type: 
  Country: None (occurrence: None)
  Receive Date: 20081128
  Receipt Date: 20081114
  Transmission Date: 20090506
  Serious: Yes (Hospitalization)
  Sender: FDA-Public Use
  Company Number: DSA_32756_2008

PATIENT
  Sex: Female

DRUGS (3)
  1. DILTIAZEM [Suspect]
     Indication: HYPERTENSION
     Dosage: 200 MG QD ORAL
     Route: 048
     Dates: start: 20080716
  2. CELEBREX [Suspect]
     Indication: POLYARTHRITIS
     Dosage: 200 MG QD
     Dates: start: 20030101
  3. INDAPAMIDE [Suspect]
     Indication: HYPERTENSION
     Dosage: DF ORAL
     Route: 048
     Dates: end: 20080716

REACTIONS (3)
  - ANAEMIA [None]
  - BONE MARROW FAILURE [None]
  - NEUTROPENIA [None]
